FAERS Safety Report 9177820 (Version 1)
Quarter: 2012Q4

REPORT INFORMATION
  Report Type: 
  Country: TR (occurrence: TR)
  Receive Date: 20121011
  Receipt Date: 20121011
  Transmission Date: 20130627
  Serious: Yes (Death)
  Sender: FDA-Public Use
  Company Number: TR-BIOMARINP-003092

PATIENT
  Sex: Female
  Weight: 30 kg

DRUGS (2)
  1. NAGLAZYME [Suspect]
     Indication: MUCOPOLYSACCHARIDOSIS VI
     Route: 041
     Dates: start: 2007
  2. PARENTERAL NUTRITION [Concomitant]
     Indication: PRODUCT USED FOR UNKNOWN INDICATION

REACTIONS (6)
  - Pneumonia [Fatal]
  - Loss of consciousness [Unknown]
  - Convulsion [Unknown]
  - Pyrexia [Unknown]
  - Dyspnoea [Unknown]
  - Respiratory failure [Unknown]
